FAERS Safety Report 4269639-0 (Version None)
Quarter: 2004Q1

REPORT INFORMATION
  Report Type: 
  Country: None (occurrence: None)
  Receive Date: 20040112
  Receipt Date: 20031229
  Transmission Date: 20041129
  Serious: Yes (Hospitalization)
  Sender: FDA-Public Use
  Company Number: 03P-028-0243454-00

PATIENT
  Age: 36 Year
  Sex: Male
  Weight: 96.4 kg

DRUGS (9)
  1. HUMIRA [Suspect]
     Indication: RHEUMATOID ARTHRITIS
     Dosage: 1 IN 2 WK, SUBCUTANEOUS
     Route: 058
     Dates: start: 20010403, end: 20031125
  2. NAPROXEN [Concomitant]
  3. METHOTREXATE [Concomitant]
  4. EFFEXOR XR [Concomitant]
  5. FOLIC ACID [Concomitant]
  6. PREDNISONE [Concomitant]
  7. FUROSEMIDE [Concomitant]
  8. ROFECOXIB [Concomitant]
  9. VENLAFAXINE HYDROCHLORIDE [Concomitant]

REACTIONS (10)
  - ASCITES [None]
  - CARDIAC TAMPONADE [None]
  - DIARRHOEA [None]
  - LYMPHADENOPATHY [None]
  - OEDEMA PERIPHERAL [None]
  - PERICARDIAL EFFUSION [None]
  - PERICARDITIS [None]
  - PITTING OEDEMA [None]
  - RHEUMATOID ARTHRITIS [None]
  - WEIGHT INCREASED [None]
